FAERS Safety Report 9415147 (Version 3)
Quarter: 2013Q3

REPORT INFORMATION
  Report Type: Report from Study
  Country: IT (occurrence: IT)
  Receive Date: 20130723
  Receipt Date: 20130925
  Transmission Date: 20140515
  Serious: Yes (Other)
  Sender: FDA-Public Use
  Company Number: IT-INCYTE CORPORATION-2013IN001560

PATIENT
  Age: 63 Year
  Sex: Female
  Weight: 72 kg

DRUGS (3)
  1. INC424 [Suspect]
     Indication: MYELOFIBROSIS
     Dosage: 20 MG, BID
     Route: 048
     Dates: start: 20130319, end: 20130710
  2. HYDROXYUREA [Concomitant]
     Dosage: UNK
     Dates: start: 200611, end: 201302
  3. EUTIROX [Concomitant]
     Dosage: UNK

REACTIONS (2)
  - Epstein-Barr viraemia [Recovering/Resolving]
  - Lymphocytosis [Recovering/Resolving]
